FAERS Safety Report 22005951 (Version 1)
Quarter: 2023Q1

REPORT INFORMATION
  Report Type: Spontaneous
  Country: US (occurrence: None)
  Receive Date: 20230217
  Receipt Date: 20230217
  Transmission Date: 20230418
  Serious: Yes (Other)
  Sender: FDA-Public Use
  Company Number: 2023A036783

PATIENT
  Age: 67 Year
  Sex: Male

DRUGS (12)
  1. ROSUVASTATIN [Suspect]
     Active Substance: ROSUVASTATIN
     Dosage: DOSE UNKNOWN
     Route: 048
  2. ABIRATERONE [Suspect]
     Active Substance: ABIRATERONE
     Indication: Prostate cancer
     Dosage: DOSE UNKNOWN
  3. AMLODIPINE [Concomitant]
     Active Substance: AMLODIPINE BESYLATE
     Dosage: DOSE UNKNOWN
  4. ASPIRIN [Concomitant]
     Active Substance: ASPIRIN
     Dosage: DOSE UNKNOWN
  5. CHOLECALCIFEROL [Concomitant]
     Active Substance: CHOLECALCIFEROL
     Dosage: DOSE UNKNOWN
  6. GABAPENTIN [Concomitant]
     Active Substance: GABAPENTIN
     Dosage: DOSE UNKNOWN
  7. GLIMEPIRIDE [Concomitant]
     Active Substance: GLIMEPIRIDE
  8. LISINOPRIL [Concomitant]
     Active Substance: LISINOPRIL
     Dosage: DOSE UNKNOWN
     Route: 048
  9. METFORMIN [Concomitant]
     Active Substance: METFORMIN HYDROCHLORIDE
     Dosage: DOSE UNKNOWN
  10. SILDENAFIL [Concomitant]
     Active Substance: SILDENAFIL
     Dosage: DOSE UNKNOWN
  11. TIZANIDINE [Concomitant]
     Active Substance: TIZANIDINE
     Dosage: DOSE UNKNOWN
  12. NAPROXEN [Concomitant]
     Active Substance: NAPROXEN
     Indication: Pain
     Dosage: DOSE UNKNOWN

REACTIONS (2)
  - Acute kidney injury [Unknown]
  - Rhabdomyolysis [Recovering/Resolving]
